FAERS Safety Report 16408783 (Version 2)
Quarter: 2019Q3

REPORT INFORMATION
  Report Type: Report from Study
  Country: US (occurrence: US)
  Receive Date: 20190610
  Receipt Date: 20190701
  Transmission Date: 20191004
  Serious: No
  Sender: FDA-Public Use
  Company Number: US-ROCHE-2306665

PATIENT
  Age: 81 Year
  Sex: Male
  Weight: 61.29 kg

DRUGS (4)
  1. BABY ASPIRIN [Concomitant]
     Active Substance: ASPIRIN
     Route: 065
  2. ESBRIET [Suspect]
     Active Substance: PIRFENIDONE
     Indication: IDIOPATHIC PULMONARY FIBROSIS
     Dosage: 3 CAPSULES 3 TIMES PER DAY
     Route: 048
     Dates: start: 201903
  3. ESBRIET [Suspect]
     Active Substance: PIRFENIDONE
     Route: 065
  4. OXYGEN. [Concomitant]
     Active Substance: OXYGEN
     Dosage: ONGOING: YES
     Route: 065

REACTIONS (3)
  - Weight decreased [Recovering/Resolving]
  - Insomnia [Recovering/Resolving]
  - Decreased appetite [Not Recovered/Not Resolved]

NARRATIVE: CASE EVENT DATE: 201903
